FAERS Safety Report 21703575 (Version 1)
Quarter: 2022Q4

REPORT INFORMATION
  Report Type: Spontaneous
  Country: FR (occurrence: FR)
  Receive Date: 20221209
  Receipt Date: 20221209
  Transmission Date: 20230112
  Serious: Yes (Other)
  Sender: FDA-Public Use
  Company Number: FR-SUN PHARMACEUTICAL INDUSTRIES LTD-2022RR-367722

PATIENT
  Age: 55 Year
  Sex: Male

DRUGS (7)
  1. MORPHINE [Suspect]
     Active Substance: MORPHINE
     Indication: Pain
     Dosage: 480 MILIGRAM, UNK
     Route: 042
  2. PREGABALIN [Suspect]
     Active Substance: PREGABALIN
     Indication: Pain
     Dosage: 200 MILLIGRAM, BID
     Route: 065
  3. OXYCODONE [Suspect]
     Active Substance: OXYCODONE
     Indication: Pain
     Dosage: UNK
     Route: 065
     Dates: start: 202001
  4. METHADONE [Suspect]
     Active Substance: METHADONE HYDROCHLORIDE
     Indication: Pain
     Dosage: SIX TAKES A DAY, RATIO OF 1:10 FOR EACH DOSE
     Route: 065
  5. MORPHINE [Suspect]
     Active Substance: MORPHINE
     Indication: Pain
     Dosage: UNK
     Route: 048
     Dates: start: 201909
  6. MORPHINE [Suspect]
     Active Substance: MORPHINE
     Dosage: 240 MILLIGRAM, BID
     Route: 048
     Dates: start: 201909
  7. HYDROMORPHONE [Suspect]
     Active Substance: HYDROMORPHONE
     Indication: Pain
     Dosage: 40 MILLIGRAM, BID
     Route: 065
     Dates: start: 202003

REACTIONS (2)
  - Drug ineffective [Unknown]
  - Bradypnoea [Unknown]
